FAERS Safety Report 6303230-7 (Version None)
Quarter: 2009Q3

REPORT INFORMATION
  Report Type: 
  Country: None (occurrence: None)
  Receive Date: 20090810
  Receipt Date: 20090211
  Transmission Date: 20100115
  Serious: No
  Sender: FDA-Public Use
  Company Number: A0768223A

PATIENT
  Age: 56 Year
  Sex: Male

DRUGS (3)
  1. PAXIL [Suspect]
     Indication: DEPRESSION
     Route: 048
     Dates: start: 19950101
  2. WELLBUTRIN XL [Suspect]
     Indication: DEPRESSION
     Dosage: 300MG PER DAY
     Route: 048
     Dates: start: 20040101
  3. NO CONCURRENT MEDICATION [Concomitant]

REACTIONS (7)
  - DIZZINESS [None]
  - DRUG ADMINISTRATION ERROR [None]
  - DYSSTASIA [None]
  - HYPERHIDROSIS [None]
  - HYPERTENSION [None]
  - MUSCLE SPASMS [None]
  - WITHDRAWAL SYNDROME [None]
